FAERS Safety Report 15413168 (Version 5)
Quarter: 2018Q4

REPORT INFORMATION
  Report Type: Spontaneous
  Country: JP (occurrence: JP)
  Receive Date: 20180921
  Receipt Date: 20181128
  Transmission Date: 20190204
  Serious: Yes (Hospitalization, Other)
  Sender: FDA-Public Use
  Company Number: JP-009507513-1809JPN000975J

PATIENT
  Age: 79 Year
  Sex: Male
  Weight: 50 kg

DRUGS (1)
  1. KEYTRUDA [Suspect]
     Active Substance: PEMBROLIZUMAB
     Indication: NON-SMALL CELL LUNG CANCER STAGE IV
     Dosage: 20 MILLIGRAM
     Route: 041
     Dates: start: 20170907, end: 20180111

REACTIONS (5)
  - Adrenocortical insufficiency acute [Unknown]
  - Adrenalitis [Unknown]
  - Hypophysitis [Unknown]
  - Thyrotoxic crisis [Recovered/Resolved]
  - Thyroiditis [Unknown]

NARRATIVE: CASE EVENT DATE: 201801
